FAERS Safety Report 6353844-3 (Version None)
Quarter: 2009Q3

REPORT INFORMATION
  Report Type: 
  Country: None (occurrence: None)
  Receive Date: 20090912
  Receipt Date: 20090622
  Transmission Date: 20100115
  Serious: No
  Sender: FDA-Public Use
  Company Number: US-ABBOTT-08P-163-0480043-00

PATIENT
  Sex: Female
  Weight: 70.37 kg

DRUGS (4)
  1. HUMIRA [Suspect]
     Indication: RHEUMATOID ARTHRITIS
     Route: 058
     Dates: start: 20080801
  2. VERAPAMIL HYDROCHLORIDE [Concomitant]
     Indication: HEART RATE IRREGULAR
     Route: 048
  3. OMEPRAZOLE MAGNESIUM [Concomitant]
     Indication: GASTRIC DISORDER
     Dosage: EVERY OTHER DAY
     Route: 048
  4. XALATAN [Concomitant]
     Indication: GLAUCOMA
     Dosage: EACH EYE
     Route: 047
     Dates: start: 20000101

REACTIONS (1)
  - INCORRECT DOSE ADMINISTERED [None]
